FAERS Safety Report 9775538 (Version 2)
Quarter: 2014Q1

REPORT INFORMATION
  Report Type: Spontaneous
  Country: US (occurrence: US)
  Receive Date: 20131220
  Receipt Date: 20140318
  Transmission Date: 20141002
  Serious: No
  Sender: FDA-Public Use
  Company Number: US-GALDERMA-US13003657

PATIENT
  Age: 39 Year
  Sex: Female
  Weight: 73 kg

DRUGS (5)
  1. MIRVASO (BRIMONIDINE) TOPICAL GEL, 0.33% [Suspect]
     Indication: ROSACEA
     Dosage: 0.33%
     Route: 061
     Dates: start: 20131030, end: 20131106
  2. MIRVASO (BRIMONIDINE) TOPICAL GEL, 0.33% [Suspect]
  3. SKINCEUTICALS CLEANSER [Concomitant]
     Indication: THERAPEUTIC SKIN CARE TOPICAL
     Route: 061
     Dates: start: 201301
  4. SKINCEUTICALS FACIAL CREAM [Concomitant]
     Indication: DRY SKIN PROPHYLAXIS
     Route: 061
  5. SKINCEUTICALS SUNSCREEN [Concomitant]
     Indication: PROPHYLAXIS AGAINST SOLAR RADIATION
     Route: 061
     Dates: start: 201301

REACTIONS (7)
  - Condition aggravated [Recovered/Resolved]
  - Rash macular [Recovered/Resolved]
  - Rosacea [Recovered/Resolved]
  - Feeling hot [Recovered/Resolved]
  - Flushing [Recovered/Resolved]
  - Erythema [Recovered/Resolved]
  - Off label use [Recovered/Resolved]
